FAERS Safety Report 4932261-4 (Version None)
Quarter: 2006Q1

REPORT INFORMATION
  Report Type: 
  Country: None (occurrence: None)
  Receive Date: 20060303
  Receipt Date: 20050913
  Transmission Date: 20060701
  Serious: Yes (Hospitalization, Other)
  Sender: FDA-Public Use
  Company Number: US-AMGEN-US150041

PATIENT
  Sex: Male
  Weight: 115 kg

DRUGS (9)
  1. EPOGEN [Suspect]
     Indication: DIALYSIS
     Route: 042
     Dates: start: 20040515
  2. ALLOPURINOL [Concomitant]
     Route: 065
  3. FLOMAX [Concomitant]
     Route: 065
  4. ALTACE [Concomitant]
     Route: 065
  5. LABETALOL HCL [Concomitant]
     Route: 065
  6. LACTULOSE [Concomitant]
     Route: 065
  7. PHOSLO [Concomitant]
     Route: 065
  8. RENAGEL [Concomitant]
     Route: 065
  9. ZANTAC [Concomitant]
     Route: 065

REACTIONS (8)
  - APLASIA PURE RED CELL [None]
  - BACTERIAL INFECTION [None]
  - BLOOD CULTURE POSITIVE [None]
  - CATHETER RELATED INFECTION [None]
  - EOSINOPHILIA [None]
  - MYELODYSPLASTIC SYNDROME [None]
  - THERAPEUTIC RESPONSE DECREASED [None]
  - VIRAL LOAD INCREASED [None]
